FAERS Safety Report 4644511-2 (Version None)
Quarter: 2005Q2

REPORT INFORMATION
  Report Type: 
  Country: None (occurrence: None)
  Receive Date: 20050425
  Receipt Date: 20050425
  Transmission Date: 20051028
  Serious: No
  Sender: FDA-Public Use
  Company Number: None

PATIENT
  Age: 7 Year
  Sex: Male
  Weight: 25 kg

DRUGS (2)
  1. DEPAKOTE [Suspect]
     Indication: INTERMITTENT EXPLOSIVE DISORDER
     Dosage: 500 MG PO QAM   ;  250 MG PO QPM
     Route: 048
     Dates: start: 20041230, end: 20050103
  2. STRATTERA [Concomitant]

REACTIONS (1)
  - PLATELET COUNT DECREASED [None]
